FAERS Safety Report 9360594 (Version 4)
Quarter: 2014Q1

REPORT INFORMATION
  Report Type: Spontaneous
  Country: US (occurrence: US)
  Receive Date: 20130621
  Receipt Date: 20140221
  Transmission Date: 20141002
  Serious: Yes (Life-Threatening, Hospitalization)
  Sender: FDA-Public Use
  Company Number: US-BAYER-2013-071492

PATIENT
  Age: 30 Year
  Sex: Female
  Weight: 79.37 kg

DRUGS (13)
  1. MIRENA [Suspect]
     Indication: CONTRACEPTION
     Dosage: 20 MCG/24HR, CONT
     Route: 015
     Dates: start: 20081002, end: 20110928
  2. MIRENA [Suspect]
     Indication: MENORRHAGIA
  3. SYNTHROID [Concomitant]
     Indication: HYPOTHYROIDISM
     Dosage: 75 MG, UNK
     Route: 048
     Dates: start: 2010
  4. HYDROCHLOROTHIAZIDE [Concomitant]
     Indication: HYPOTHYROIDISM
     Dosage: UNK
     Dates: start: 2011
  5. LABETALOL [Concomitant]
     Dosage: 20 MG, UNK
     Route: 042
     Dates: start: 20110408
  6. TRAMADOL [Concomitant]
     Indication: PAIN
     Dosage: 50 MG,
     Route: 048
  7. VITAMIN D3 [Concomitant]
     Dosage: 5000 U, UNK
     Route: 048
  8. VITAMIN K [Concomitant]
     Dosage: 550 MCG/24HR, UNK
     Route: 048
  9. FISH OIL [Concomitant]
     Dosage: 1200 MG, UNK
     Route: 048
  10. VITAMIN C [Concomitant]
     Dosage: 5 MG, UNK
  11. VITA-B6 [Concomitant]
     Dosage: 5 MG, UNK
     Route: 048
  12. VITAFOL [FERRIC PYROPHOSPHATE,FOLIC ACID,VITAMIN B NOS] [Concomitant]
     Dosage: UNK
     Route: 048
     Dates: start: 2002
  13. FIORICET [Concomitant]

REACTIONS (11)
  - Uterine perforation [None]
  - Infection [None]
  - Abdominal pain [None]
  - Injury [None]
  - General physical health deterioration [None]
  - Anhedonia [None]
  - Anxiety [None]
  - Emotional distress [None]
  - Stress [None]
  - Pregnancy with contraceptive device [None]
  - Drug ineffective [None]
